FAERS Safety Report 6823502-7 (Version None)
Quarter: 2010Q3

REPORT INFORMATION
  Report Type: 
  Country: None (occurrence: None)
  Receive Date: 20100708
  Receipt Date: 20100707
  Transmission Date: 20110219
  Serious: Yes (Hospitalization, Other)
  Sender: FDA-Public Use
  Company Number: US-ROXANE LABORATORIES, INC.-2010-RO-00804RO

PATIENT
  Age: 34 Year
  Sex: Female

DRUGS (9)
  1. TOPIRAMATE [Suspect]
  2. FLUCONAZOLE [Suspect]
  3. LEVETIRACETAM [Suspect]
  4. RITONAVIR [Suspect]
  5. LAMIVUDINE [Suspect]
  6. NEVIRAPINE [Suspect]
  7. ETHAMBUTOL HYDROCHLORIDE [Suspect]
  8. RIFABUTIN [Suspect]
  9. CLONAZEPAM [Suspect]

REACTIONS (5)
  - ACTIVITIES OF DAILY LIVING IMPAIRED [None]
  - ACUTE PRERENAL FAILURE [None]
  - METABOLIC ACIDOSIS [None]
  - RENAL TUBULAR ACIDOSIS [None]
  - RESPIRATORY FATIGUE [None]
